FAERS Safety Report 9366754 (Version 4)
Quarter: 2014Q2

REPORT INFORMATION
  Report Type: Report from Study
  Country: US (occurrence: US)
  Receive Date: 20130625
  Receipt Date: 20140527
  Transmission Date: 20141212
  Serious: Yes (Hospitalization, Other)
  Sender: FDA-Public Use
  Company Number: US-GLAXOSMITHKLINE-A1024040B

PATIENT
  Age: 0 Day
  Sex: Male
  Weight: 2 kg

DRUGS (5)
  1. BENLYSTA [Suspect]
     Indication: SYSTEMIC LUPUS ERYTHEMATOSUS
     Dosage: 620MG MONTHLY
     Route: 064
     Dates: start: 20120725, end: 20121017
  2. PREDNISONE [Concomitant]
     Indication: SYSTEMIC LUPUS ERYTHEMATOSUS
     Dosage: 10MG TWICE PER DAY
     Route: 064
     Dates: start: 20100903
  3. HYDROXYCHLOROQUINE [Concomitant]
     Route: 064
     Dates: start: 20100804
  4. MARIJUANA [Concomitant]
  5. PREDNISONE [Concomitant]
     Indication: SYSTEMIC LUPUS ERYTHEMATOSUS
     Dosage: 5MG PER DAY
     Route: 064

REACTIONS (2)
  - Premature baby [Unknown]
  - Foetal exposure during pregnancy [Unknown]
